FAERS Safety Report 8810981 (Version 6)
Quarter: 2016Q1

REPORT INFORMATION
  Report Type: Spontaneous
  Country: US (occurrence: US)
  Receive Date: 20120927
  Receipt Date: 20160328
  Transmission Date: 20160526
  Serious: No
  Sender: FDA-Public Use
  Company Number: US-PFIZER INC-2012238005

PATIENT
  Age: 51 Year
  Sex: Female

DRUGS (52)
  1. LYRICA [Suspect]
     Active Substance: PREGABALIN
     Indication: DIABETIC NEUROPATHY
     Dosage: 100 MG, 2X/DAY
  2. NOVOLOG [Concomitant]
     Active Substance: INSULIN ASPART
     Dosage: UNK UNK, 3X/DAY
  3. AMITRIPTYLINE [Concomitant]
     Active Substance: AMITRIPTYLINE
     Indication: CERVICAL MYELOPATHY
  4. TYLENOL [Concomitant]
     Active Substance: ACETAMINOPHEN
     Indication: CERVICAL MYELOPATHY
  5. MOTRIN [Concomitant]
     Active Substance: IBUPROFEN
     Indication: SCIATIC NERVE NEUROPATHY
  6. ASPIRIN. [Concomitant]
     Active Substance: ASPIRIN
     Indication: ABDOMINAL DISCOMFORT
     Dosage: OVER 40MG
  7. FLUTICASONE PROPIONATE. [Concomitant]
     Active Substance: FLUTICASONE PROPIONATE
     Dosage: 0.05 MG/INH SPRAY, 2 SPRAY IN EACH NOSTRIL INTRA NASALLY ONCE A DAY
     Route: 045
     Dates: start: 20081001
  8. AMITRIPTYLINE HYDROCHLORIDE. [Concomitant]
     Active Substance: AMITRIPTYLINE HYDROCHLORIDE
     Dosage: 50 MG, 1X/DAY AT BEDTIME
     Route: 048
  9. LOSARTAN. [Concomitant]
     Active Substance: LOSARTAN
     Indication: HYPERTENSION
     Dosage: 50 MG, 1X/DAY
     Dates: start: 200707
  10. HYDROCHLOROTHIAZIDE. [Concomitant]
     Active Substance: HYDROCHLOROTHIAZIDE
     Dosage: 25 MG, DAILY
     Route: 048
  11. AMITRIPTYLINE [Concomitant]
     Active Substance: AMITRIPTYLINE
     Indication: INTERVERTEBRAL DISC DEGENERATION
     Dosage: 25 MG, 1X/DAY
     Dates: start: 20080123
  12. XANAX [Concomitant]
     Active Substance: ALPRAZOLAM
     Dosage: 0.25 MG, AS NEEDED(1 TABLET ORALLY TWICE A DAY NEEDED)
     Route: 048
  13. BABY ASPIRIN [Concomitant]
     Active Substance: ASPIRIN
     Indication: ABDOMINAL DISCOMFORT
     Dosage: 84 MG, 1X/DAY
     Dates: start: 200701
  14. TYLENOL [Concomitant]
     Active Substance: ACETAMINOPHEN
     Indication: INTERVERTEBRAL DISC DEGENERATION
     Dosage: 50 MG, AS NEEDED
     Dates: start: 200807
  15. ASPIRIN. [Concomitant]
     Active Substance: ASPIRIN
     Dosage: 81 MG, 1X/DAY
  16. VALIUM [Concomitant]
     Active Substance: DIAZEPAM
     Dosage: 2 MG, 3X/DAY
     Route: 048
  17. CLOTRIMAZOLE. [Concomitant]
     Active Substance: CLOTRIMAZOLE
     Dosage: 1 % CREAM, 1 APPLICATION TO AFFECTED AREA EXTERNALLY TWICE A DAY
  18. CLOTRIMAZOLE. [Concomitant]
     Active Substance: CLOTRIMAZOLE
     Dosage: 1 APPLICATION TO AFFECTED AREA EXTERNALLY, AS NEEDED
     Dates: start: 20141216
  19. LYRICA [Suspect]
     Active Substance: PREGABALIN
     Dosage: 150 MG, 2X/DAY
     Route: 048
     Dates: start: 200711
  20. ZOLOFT [Suspect]
     Active Substance: SERTRALINE HYDROCHLORIDE
     Indication: ANXIETY
     Dosage: 50 MG, 1X/DAY
     Dates: start: 201211
  21. HYDROCHLOROTHIAZIDE. [Concomitant]
     Active Substance: HYDROCHLOROTHIAZIDE
     Indication: FLUID RETENTION
     Dosage: 12.5 MG, 1X/DAY
     Dates: start: 201107
  22. MOTRIN [Concomitant]
     Active Substance: IBUPROFEN
     Indication: CERVICAL MYELOPATHY
  23. GENERAL NUTRIENTS/MINERALS/VITAMINS [Concomitant]
     Dosage: UNK
  24. LOSARTAN POTASSIUM. [Concomitant]
     Active Substance: LOSARTAN POTASSIUM
     Dosage: 50 MG, 1X/DAY
     Route: 048
  25. DULCOLAX NOS [Concomitant]
     Active Substance: BISACODYL OR DOCUSATE SODIUM
     Dosage: 10 MG, 1X/DAY (1 SUPPOSITORY AS NEEDED RECTAL ONCE A DAY)
     Route: 054
  26. COLACE [Concomitant]
     Active Substance: DOCUSATE SODIUM
     Dosage: 100 MG, AS NEEDED TWICE A DAY
     Route: 048
  27. AMBIEN [Concomitant]
     Active Substance: ZOLPIDEM TARTRATE
     Dosage: 5 MG, 1X/DAY AT BEDTIME
     Route: 048
  28. MULTIVITAMINS [Concomitant]
     Active Substance: VITAMINS
     Dosage: 1 DF, 1X/DAY
     Route: 048
  29. NOVOLOG [Concomitant]
     Active Substance: INSULIN ASPART
     Indication: DIABETES MELLITUS
     Dosage: 5-8 UNITS, MEALS
     Dates: start: 201101
  30. OXYGEN. [Concomitant]
     Active Substance: OXYGEN
     Indication: SLEEP APNOEA SYNDROME
     Dosage: UNK
     Dates: start: 200506
  31. XANAX [Concomitant]
     Active Substance: ALPRAZOLAM
     Dosage: 0.25 MG, 2X/DAY
     Route: 048
  32. ZOFRAN ODT [Concomitant]
     Active Substance: ONDANSETRON HYDROCHLORIDE
     Dosage: 4 MG, 1 TABLET ON THE TONGUE AND ALLOW TO DISSOLVE ORALLY EVERY 8 HRS
     Route: 048
     Dates: start: 20150806
  33. OMEPRAZOLE. [Concomitant]
     Active Substance: OMEPRAZOLE
     Dosage: 40 MG, 1X/DAY
     Route: 048
     Dates: start: 20160218
  34. ATORVASTATIN CALCIUM. [Concomitant]
     Active Substance: ATORVASTATIN CALCIUM
     Dosage: 10 MG, 1X/DAY
     Route: 048
  35. AMITRIPTYLINE [Concomitant]
     Active Substance: AMITRIPTYLINE
     Indication: SCIATIC NERVE NEUROPATHY
  36. LOSARTAN POTASSIUM. [Concomitant]
     Active Substance: LOSARTAN POTASSIUM
     Dosage: 100 MG, 1X/DAY
     Route: 048
  37. MELOXICAM. [Concomitant]
     Active Substance: MELOXICAM
     Dosage: 15 MG, 1X/DAY
     Route: 048
     Dates: start: 20160223
  38. PROTONIX [Suspect]
     Active Substance: PANTOPRAZOLE SODIUM
     Indication: GASTROOESOPHAGEAL REFLUX DISEASE
     Dosage: 40 MG, 1X/DAY (1 TABLET ORALLY ONCE A DAY)
     Route: 048
     Dates: start: 200306
  39. TYLENOL [Concomitant]
     Active Substance: ACETAMINOPHEN
     Indication: SCIATIC NERVE NEUROPATHY
  40. MOTRIN [Concomitant]
     Active Substance: IBUPROFEN
     Indication: INTERVERTEBRAL DISC DEGENERATION
     Dosage: 600 MG, AS NEEDED
     Dates: start: 20080123
  41. VALIUM [Concomitant]
     Active Substance: DIAZEPAM
     Dosage: 2 MG 1 TABLET, AS NEEDED TWICE A DAY
     Route: 048
  42. VITAMIN D [Concomitant]
     Active Substance: CHOLECALCIFEROL
     Dosage: 1000 IU, 1X/DAY (1 TABLET ONCE A DAY)
     Route: 048
  43. NYSTATIN. [Concomitant]
     Active Substance: NYSTATIN
     Dosage: 100000 UNK, 2X/DAY (100000 UNIT/GM POWDER, SIG: AS DIRECTED EXTERNALLY BID)
     Route: 061
  44. PROZAC [Concomitant]
     Active Substance: FLUOXETINE HYDROCHLORIDE
     Dosage: 20 MG, 1X/DAY(1 CAPSULE IN THE MORNING ORALLY ONCE A DAY)
     Route: 048
     Dates: start: 20160301
  45. LANTUS [Concomitant]
     Active Substance: INSULIN GLARGINE
     Indication: DIABETES MELLITUS
     Dosage: 25 IU, 1X/DAY
     Dates: start: 200601
  46. LANTUS [Concomitant]
     Active Substance: INSULIN GLARGINE
     Dosage: 100 IU/ML (100 UNITS/ML SOLUTION)
     Route: 058
  47. PRAVASTATIN [Concomitant]
     Active Substance: PRAVASTATIN\PRAVASTATIN SODIUM
     Indication: BLOOD CHOLESTEROL INCREASED
     Dosage: 80 MG, 1X/DAY
     Dates: start: 200701
  48. FLUTICASONE [Concomitant]
     Active Substance: FLUTICASONE\FLUTICASONE PROPIONATE
     Indication: HYPERSENSITIVITY
     Dosage: 50 UG, 1X/DAY
     Dates: start: 200708
  49. PHENTERMINE HYDROCHLORIDE. [Concomitant]
     Active Substance: PHENTERMINE HYDROCHLORIDE
     Dosage: 37.5 MG 1 TABLET, 1X/DAY
     Route: 048
  50. HYDROCODONE W/ACETAMINOPHEN [Concomitant]
     Active Substance: ACETAMINOPHEN\HYDROCODONE BITARTRATE
     Dosage: 5-500 MG, AS NEEDED (5-500 MG CAPSULE, 1 CAPSULE AS NEEDED ORALLY EVERY 6 HRS)
     Route: 048
  51. FLEXERIL [Concomitant]
     Active Substance: CYCLOBENZAPRINE HYDROCHLORIDE
     Dosage: 10 MG, 3X/DAY (1 TABLET ORALLY THREE TIMES A DAY)
     Route: 048
  52. ZYRTEC [Concomitant]
     Active Substance: CETIRIZINE HYDROCHLORIDE
     Dosage: 10 MG, AS NEEDED (1 TABLET AS NEEDED ORALLY ONCE A DAY)
     Route: 048
     Dates: start: 20160209

REACTIONS (2)
  - Pain in extremity [Unknown]
  - Pain [Unknown]
